FAERS Safety Report 8612979-2 (Version None)
Quarter: 2012Q3

REPORT INFORMATION
  Report Type: 
  Country: None (occurrence: None)
  Receive Date: 20120822
  Receipt Date: 20120817
  Transmission Date: 20120928
  Serious: Yes (Other)
  Sender: FDA-Public Use
  Company Number: JP-BAYER-2012-084936

PATIENT
  Age: 40 Year
  Sex: Female

DRUGS (1)
  1. BETAFERON [Suspect]
     Indication: MULTIPLE SCLEROSIS RELAPSE PROPHYLAXIS
     Dosage: DAILY DOSE 2 MIU
     Route: 058
     Dates: start: 20120814, end: 20120816

REACTIONS (2)
  - VISUAL ACUITY REDUCED [None]
  - MACULAR OEDEMA [None]
